FAERS Safety Report 15179833 (Version 5)
Quarter: 2018Q3

REPORT INFORMATION
  Report Type: Report from Study
  Country: BR (occurrence: BR)
  Receive Date: 20180723
  Receipt Date: 20180809
  Transmission Date: 20181010
  Serious: Yes (Other)
  Sender: FDA-Public Use
  Company Number: BR-ROCHE-2138383

PATIENT
  Age: 39 Year
  Sex: Female
  Weight: 48 kg

DRUGS (9)
  1. XOLAIR [Suspect]
     Active Substance: OMALIZUMAB
     Route: 058
     Dates: start: 20180720
  2. XOLAIR [Suspect]
     Active Substance: OMALIZUMAB
     Indication: URTICARIA
     Dosage: 2 DF, EVERY 4 WEEKS
     Route: 058
     Dates: start: 20180523
  3. ALLEGRA [Concomitant]
     Active Substance: FEXOFENADINE HYDROCHLORIDE
     Indication: PRODUCT USED FOR UNKNOWN INDICATION
     Route: 065
  4. SERTRALINE [Concomitant]
     Active Substance: SERTRALINE HYDROCHLORIDE
     Indication: DISTURBANCE IN ATTENTION
     Route: 065
  5. XOLAIR [Suspect]
     Active Substance: OMALIZUMAB
     Dosage: 2 DF (150MG), QMO
     Route: 058
     Dates: start: 201805
  6. SERTRALINE [Concomitant]
     Active Substance: SERTRALINE HYDROCHLORIDE
     Indication: ANXIETY
     Dosage: 1 DF, QD
     Route: 048
  7. XOLAIR [Suspect]
     Active Substance: OMALIZUMAB
     Route: 058
     Dates: start: 20180621
  8. RIVOTRIL [Concomitant]
     Active Substance: CLONAZEPAM
     Indication: ANXIETY
  9. RIVOTRIL [Concomitant]
     Active Substance: CLONAZEPAM
     Indication: URTICARIA
     Dosage: 1 DF, QD (USING FOR 14 YEARS)
     Route: 048

REACTIONS (24)
  - Disturbance in attention [Not Recovered/Not Resolved]
  - Pneumonia [Unknown]
  - Immunodeficiency [Not Recovered/Not Resolved]
  - Dizziness [Recovering/Resolving]
  - Tremor [Recovering/Resolving]
  - Diarrhoea [Recovering/Resolving]
  - Influenza [Recovering/Resolving]
  - Daydreaming [Recovering/Resolving]
  - Eye swelling [Recovering/Resolving]
  - Hair texture abnormal [Not Recovered/Not Resolved]
  - Secretion discharge [Recovering/Resolving]
  - Tremor [Recovered/Resolved]
  - Head discomfort [Recovering/Resolving]
  - Thinking abnormal [Recovering/Resolving]
  - Amnesia [Recovering/Resolving]
  - Urticaria [Recovering/Resolving]
  - Sensitivity to weather change [Not Recovered/Not Resolved]
  - Headache [Recovering/Resolving]
  - Headache [Recovered/Resolved]
  - Dyspnoea [Recovering/Resolving]
  - Dysphonia [Recovering/Resolving]
  - Neck pain [Unknown]
  - Pulmonary congestion [Unknown]
  - Onychomalacia [Not Recovered/Not Resolved]

NARRATIVE: CASE EVENT DATE: 20180523
